FAERS Safety Report 7655501-X (Version None)
Quarter: 2011Q3

REPORT INFORMATION
  Report Type: 
  Country: None (occurrence: None)
  Receive Date: 20110804
  Receipt Date: 20110721
  Transmission Date: 20111222
  Serious: Yes (Hospitalization, Other)
  Sender: FDA-Public Use
  Company Number: MX-RANBAXY-2011RR-45767

PATIENT
  Age: 23 Year
  Sex: Female

DRUGS (8)
  1. ISOTRETINOIN [Suspect]
     Indication: ACNE
     Dosage: 40 MG, UNK
     Route: 048
     Dates: start: 20080501, end: 20080901
  2. OMEPRAZOLE [Concomitant]
     Indication: GASTROENTERITIS
     Dosage: UNK
     Route: 065
  3. COTRIM [Concomitant]
     Indication: GASTROENTERITIS
     Route: 065
  4. CEFTRIAXONE [Concomitant]
     Indication: GASTROENTERITIS
     Route: 065
  5. AMIKACIN [Concomitant]
     Indication: GASTROENTERITIS
     Route: 065
  6. METRONIDAZOLE [Concomitant]
     Indication: GASTROENTERITIS
     Route: 065
  7. MAGALDRATE/DIMETICONE [Concomitant]
     Indication: GASTROENTERITIS
     Route: 065
  8. NIFUROXAZIDE [Concomitant]
     Indication: GASTROENTERITIS
     Route: 065

REACTIONS (1)
  - COLITIS ULCERATIVE [None]
